FAERS Safety Report 23292249 (Version 1)
Quarter: 2023Q4

REPORT INFORMATION
  Report Type: Spontaneous
  Country: US (occurrence: None)
  Receive Date: 20231212
  Receipt Date: 20231212
  Transmission Date: 20240109
  Serious: Yes (Hospitalization)
  Sender: FDA-Public Use
  Company Number: None

PATIENT
  Age: 74 Year
  Sex: Female

DRUGS (13)
  1. OPSUMIT [Suspect]
     Active Substance: MACITENTAN
     Indication: Pulmonary hypertension
     Dosage: FREQUENCY : DAILY;?
     Route: 048
     Dates: start: 20230217
  2. SILDENAFIL [Concomitant]
     Active Substance: SILDENAFIL
  3. oxygen intranasal [Concomitant]
  4. ALPRAZOLAM [Concomitant]
  5. DULOXETINE [Concomitant]
  6. FLONASE [Concomitant]
     Active Substance: FLUTICASONE PROPIONATE
  7. FUROSEMIDE [Concomitant]
     Active Substance: FUROSEMIDE
  8. SIMVASTATIN [Concomitant]
     Active Substance: SIMVASTATIN
  9. METOPROLOL [Concomitant]
  10. METFORMIN [Concomitant]
  11. POTASSIUM CHLORIDE [Concomitant]
     Active Substance: POTASSIUM CHLORIDE
  12. OMEPRAZOLE [Concomitant]
     Active Substance: OMEPRAZOLE
  13. MYCOPHENOLIC ACID [Concomitant]
     Active Substance: MYCOPHENOLIC ACID

REACTIONS (3)
  - Respiratory failure [None]
  - Cardiac failure [None]
  - Acute myocardial infarction [None]

NARRATIVE: CASE EVENT DATE: 20231203
